FAERS Safety Report 7850090-9 (Version None)
Quarter: 2011Q4

REPORT INFORMATION
  Report Type: 
  Country: None (occurrence: None)
  Receive Date: 20111026
  Receipt Date: 20111018
  Transmission Date: 20120403
  Serious: Yes (Hospitalization)
  Sender: FDA-Public Use
  Company Number: US-ASTELLAS-2011US005673

PATIENT
  Sex: Male
  Weight: 62 kg

DRUGS (20)
  1. AGGRENOX [Concomitant]
     Indication: PRODUCT USED FOR UNKNOWN INDICATION
     Dosage: UNK
     Route: 065
     Dates: start: 20040101
  2. VALIUM [Concomitant]
     Indication: PRODUCT USED FOR UNKNOWN INDICATION
     Dosage: UNK
     Route: 065
     Dates: start: 20110125
  3. COMPAZINE [Concomitant]
     Indication: PRODUCT USED FOR UNKNOWN INDICATION
     Dosage: UNK
     Route: 065
     Dates: start: 20110524
  4. PACLITAXEL [Suspect]
     Indication: LARYNGEAL CANCER METASTATIC
     Dosage: 143 MG, WEEKLY
     Route: 042
     Dates: start: 20110524, end: 20110918
  5. CARBOPLATIN [Suspect]
     Indication: LARYNGEAL CANCER METASTATIC
     Dosage: 145 MG, WEEKLY
     Route: 042
     Dates: start: 20110524, end: 20110918
  6. ADVAIR DISKUS 100/50 [Concomitant]
     Indication: PRODUCT USED FOR UNKNOWN INDICATION
     Dosage: UNK
     Route: 065
     Dates: start: 20040101
  7. ONDANSETRON [Concomitant]
     Indication: PRODUCT USED FOR UNKNOWN INDICATION
     Dosage: UNK
     Route: 065
     Dates: start: 20110524
  8. AMBIEN [Concomitant]
     Indication: PRODUCT USED FOR UNKNOWN INDICATION
     Dosage: UNK
     Route: 065
     Dates: start: 20110712
  9. METOMIDAZOLE [Concomitant]
     Indication: PRODUCT USED FOR UNKNOWN INDICATION
     Dosage: UNK
     Route: 065
     Dates: start: 20110712
  10. SIMVASTATIN [Concomitant]
     Indication: PRODUCT USED FOR UNKNOWN INDICATION
     Dosage: UNK
     Route: 065
     Dates: start: 20040101
  11. EFFEXOR [Concomitant]
     Indication: PRODUCT USED FOR UNKNOWN INDICATION
     Dosage: UNK
     Route: 065
     Dates: start: 20110712
  12. CETUXIMAB [Suspect]
     Indication: LARYNGEAL CANCER METASTATIC
     Dosage: 442 MG, UNKNOWN/D
     Route: 042
     Dates: start: 20110524, end: 20110918
  13. XOPENEX HFA [Concomitant]
     Indication: PRODUCT USED FOR UNKNOWN INDICATION
     Dosage: UNK
     Route: 065
     Dates: start: 20040101
  14. SENOKOT [Concomitant]
     Indication: PRODUCT USED FOR UNKNOWN INDICATION
     Dosage: UNK
     Route: 065
     Dates: start: 20110511
  15. DULCOLAX [Concomitant]
     Indication: PRODUCT USED FOR UNKNOWN INDICATION
     Dosage: UNK
     Route: 065
     Dates: start: 20110511
  16. OXYCONTIN [Concomitant]
     Indication: PRODUCT USED FOR UNKNOWN INDICATION
     Dosage: UNK
     Route: 065
     Dates: start: 20101201
  17. ERLOTINIB HYDROCHLORIDE [Suspect]
     Indication: LARYNGEAL CANCER METASTATIC
     Dosage: 100 MG, UID/QD
     Route: 048
     Dates: start: 20110524, end: 20110905
  18. OXYCODONE HCL [Concomitant]
     Indication: PRODUCT USED FOR UNKNOWN INDICATION
     Dosage: UNK
     Route: 065
     Dates: start: 20101201
  19. MIRALAX [Concomitant]
     Dosage: UNK
     Route: 065
     Dates: start: 20110511
  20. HYDROCORTISONE [Concomitant]
     Indication: PRODUCT USED FOR UNKNOWN INDICATION
     Dosage: UNK
     Route: 065
     Dates: start: 20110531

REACTIONS (6)
  - STAPHYLOCOCCAL SEPSIS [None]
  - FEBRILE NEUTROPENIA [None]
  - OFF LABEL USE [None]
  - URINARY TRACT INFECTION [None]
  - NEOPLASM MALIGNANT [None]
  - METABOLIC ENCEPHALOPATHY [None]
